FAERS Safety Report 15122878 (Version 1)
Quarter: 2018Q3

REPORT INFORMATION
  Report Type: Spontaneous
  Country: US (occurrence: US)
  Receive Date: 20180709
  Receipt Date: 20180709
  Transmission Date: 20181010
  Serious: No
  Sender: FDA-Public Use
  Company Number: US-TERSERA THERAPEUTICS, LLC-2051607

PATIENT
  Age: 35 Year
  Sex: Female

DRUGS (1)
  1. ZOLADEX [Suspect]
     Active Substance: GOSERELIN ACETATE
     Indication: PRODUCT USED FOR UNKNOWN INDICATION
     Route: 058

REACTIONS (7)
  - Osteoporosis [Unknown]
  - Bone pain [Unknown]
  - Tooth disorder [Unknown]
  - Pain [Unknown]
  - Depression [Unknown]
  - Menstrual disorder [Recovered/Resolved]
  - Neck pain [Unknown]
